FAERS Safety Report 5230394-9 (Version None)
Quarter: 2007Q1

REPORT INFORMATION
  Report Type: 
  Country: None (occurrence: None)
  Receive Date: 20070201
  Receipt Date: 20070123
  Transmission Date: 20070707
  Serious: Yes (Death, Hospitalization)
  Sender: FDA-Public Use
  Company Number: 2007JP000292

PATIENT
  Age: 68 Year
  Sex: Female
  Weight: 46 kg

DRUGS (7)
  1. PROGRAF [Suspect]
     Indication: RHEUMATOID ARTHRITIS
     Dosage: ORAL
     Route: 048
     Dates: start: 20060524, end: 20060808
  2. ENBREL [Suspect]
     Indication: RHEUMATOID ARTHRITIS
     Dosage: 50 MG, WEEKLY, SUBCUTANEOUS
     Route: 058
     Dates: start: 20060626, end: 20060803
  3. RHEUMATREX [Suspect]
     Indication: RHEUMATOID ARTHRITIS
     Dosage: 6 MG, WEEKLY, ORAL
     Route: 048
     Dates: start: 20050412, end: 20060814
  4. PREDNISOLONE [Suspect]
     Indication: RHEUMATOID ARTHRITIS
     Dosage: 10 MG, UID/QD, ORAL
     Route: 048
     Dates: start: 20050412, end: 20060814
  5. ALENDRONATE SODIUM [Concomitant]
  6. LOXOPROFEN SODIUM (LOXOPROFEN SODIUM) [Concomitant]
  7. RALOXIFENE HCL [Concomitant]

REACTIONS (5)
  - DIFFUSE LARGE B-CELL LYMPHOMA [None]
  - GASTROINTESTINAL NECROSIS [None]
  - HEPATIC FUNCTION ABNORMAL [None]
  - INFECTION [None]
  - SPLENOMEGALY [None]
